FAERS Safety Report 20137714 (Version 2)
Quarter: 2022Q1

REPORT INFORMATION
  Report Type: Report from Study
  Country: CA (occurrence: CA)
  Receive Date: 20211202
  Receipt Date: 20220107
  Transmission Date: 20220424
  Serious: Yes (Death)
  Sender: FDA-Public Use
  Company Number: CA-ABBVIE-21K-028-4181937-00

PATIENT
  Age: 79 Year
  Sex: Male

DRUGS (1)
  1. VENCLEXTA [Suspect]
     Active Substance: VENETOCLAX
     Indication: Acute myeloid leukaemia
     Route: 048
     Dates: start: 20211115, end: 20211130

REACTIONS (2)
  - Septic shock [Fatal]
  - Acidosis [Unknown]

NARRATIVE: CASE EVENT DATE: 20211101
